FAERS Safety Report 5219355-3 (Version None)
Quarter: 2007Q1

REPORT INFORMATION
  Report Type: 
  Country: None (occurrence: None)
  Receive Date: 20070125
  Receipt Date: 20070112
  Transmission Date: 20070707
  Serious: Yes (Other)
  Sender: FDA-Public Use
  Company Number: US-ELI_LILLY_AND_COMPANY-US200701001652

PATIENT
  Age: 50 Year
  Sex: Female

DRUGS (3)
  1. CYMBALTA [Suspect]
     Indication: ANXIETY
     Dosage: 60 MG, DAILY (1/D)
     Dates: start: 20060101, end: 20070101
  2. CYMBALTA [Suspect]
     Dosage: 30 MG, UNK
     Dates: start: 20070101
  3. NADOLOL [Concomitant]
     Dosage: 10 MG, DAILY (1/D)

REACTIONS (4)
  - BUNDLE BRANCH BLOCK LEFT [None]
  - SYNCOPE [None]
  - VENTRICULAR EXTRASYSTOLES [None]
  - VENTRICULAR TACHYCARDIA [None]
